FAERS Safety Report 14195188 (Version 1)
Quarter: 2017Q4

REPORT INFORMATION
  Report Type: Spontaneous
  Country: AU (occurrence: AU)
  Receive Date: 20171116
  Receipt Date: 20171116
  Transmission Date: 20180321
  Serious: Yes (Other)
  Sender: FDA-Public Use
  Company Number: AU-PFIZER INC-2017484400

PATIENT
  Age: 69 Year
  Sex: Female

DRUGS (2)
  1. PREMIA LOW CONTINUOUS [Suspect]
     Active Substance: ESTROGENS, CONJUGATED\MEDROXYPROGESTERONE ACETATE
     Dosage: 2.5 MG, UNK
  2. PREMIA LOW CONTINUOUS [Suspect]
     Active Substance: ESTROGENS, CONJUGATED\MEDROXYPROGESTERONE ACETATE
     Dosage: 5 MG, UNK

REACTIONS (6)
  - Mesenteric vein thrombosis [Unknown]
  - Wrong technique in product usage process [None]
  - Scar [None]
  - Malaise [None]
  - Asthenia [None]
  - Intentional product misuse [Unknown]
